FAERS Safety Report 4660492-X (Version None)
Quarter: 2005Q2

REPORT INFORMATION
  Report Type: 
  Country: None (occurrence: None)
  Receive Date: 20050511
  Receipt Date: 20050511
  Transmission Date: 20051028
  Serious: Yes (Hospitalization)
  Sender: FDA-Public Use
  Company Number: None

PATIENT
  Age: 46 Year
  Sex: Male
  Weight: 75 kg

DRUGS (1)
  1. OXCARBAZAPINE [Suspect]
     Indication: BIPOLAR DISORDER
     Dosage: 600 MG PO BID
     Route: 048
     Dates: start: 20040218, end: 20050222

REACTIONS (13)
  - AGITATION [None]
  - BACK PAIN [None]
  - COUGH [None]
  - HEADACHE [None]
  - HYPONATRAEMIA [None]
  - INAPPROPRIATE ANTIDIURETIC HORMONE SECRETION [None]
  - MENINGITIS [None]
  - MENTAL STATUS CHANGES [None]
  - NAUSEA [None]
  - NECK PAIN [None]
  - PYREXIA [None]
  - TREATMENT NONCOMPLIANCE [None]
  - VOMITING [None]
